FAERS Safety Report 21139379 (Version 5)
Quarter: 2023Q2

REPORT INFORMATION
  Report Type: Spontaneous
  Country: US (occurrence: US)
  Receive Date: 20220727
  Receipt Date: 20230630
  Transmission Date: 20230722
  Serious: Yes (Other)
  Sender: FDA-Public Use
  Company Number: US-BRISTOL-MYERS SQUIBB COMPANY-2022-080050

PATIENT
  Age: 87 Year
  Sex: Female
  Weight: 79.3 kg

DRUGS (1)
  1. REVLIMID [Suspect]
     Active Substance: LENALIDOMIDE
     Indication: Plasma cell myeloma
     Dosage: 1 CAPSULE (10 MILLIGRAM), DAILY AT BEDTIME FOR DAYS 1-21 OF EACH 28 DAY CYCLE
     Route: 048
     Dates: start: 20220606

REACTIONS (10)
  - Swelling [Unknown]
  - Chest discomfort [Unknown]
  - Peripheral swelling [Unknown]
  - Blood potassium decreased [Unknown]
  - Tenderness [Unknown]
  - Diarrhoea [Unknown]
  - Fall [Unknown]
  - Pollakiuria [Unknown]
  - Balance disorder [Unknown]
  - Upper limb fracture [Unknown]

NARRATIVE: CASE EVENT DATE: 20220701
